FAERS Safety Report 6679710-1 (Version None)
Quarter: 2010Q2

REPORT INFORMATION
  Report Type: 
  Country: None (occurrence: None)
  Receive Date: 20100409
  Receipt Date: 20100326
  Transmission Date: 20101027
  Serious: Yes (Hospitalization)
  Sender: FDA-Public Use
  Company Number: 232614J10USA

PATIENT
  Age: 42 Year
  Sex: Female

DRUGS (2)
  1. REBIF [Suspect]
     Indication: MULTIPLE SCLEROSIS
     Dosage: 44  MG, 3 IN 1 WK, SUBCUTANEOUS
     Route: 058
     Dates: start: 20091130
  2. ALEVE [Concomitant]

REACTIONS (5)
  - ASTHENIA [None]
  - BLOOD COUNT ABNORMAL [None]
  - INJECTION SITE PAIN [None]
  - MUSCULAR WEAKNESS [None]
  - PAIN IN EXTREMITY [None]
